FAERS Safety Report 6103828-5 (Version None)
Quarter: 2009Q1

REPORT INFORMATION
  Report Type: 
  Country: None (occurrence: None)
  Receive Date: 20090305
  Receipt Date: 20090302
  Transmission Date: 20090719
  Serious: Yes (Death, Hospitalization)
  Sender: FDA-Public Use
  Company Number: US-ABBOTT-09P-163-0560066-00

PATIENT
  Sex: Male

DRUGS (15)
  1. ZEMPLAR [Suspect]
     Indication: RENAL FAILURE CHRONIC
     Route: 048
     Dates: start: 20070101
  2. CARTIA XT [Concomitant]
     Indication: ATRIAL FIBRILLATION
     Route: 048
  3. COUMADIN [Concomitant]
     Indication: ANTICOAGULANT THERAPY
     Route: 048
  4. PLAVIX [Concomitant]
     Indication: ANTICOAGULANT THERAPY
     Route: 048
  5. RENVELLA [Concomitant]
     Indication: ELECTROLYTE IMBALANCE
     Route: 048
  6. ARENAL [Concomitant]
     Indication: RENAL FAILURE CHRONIC
     Dosage: UNKNOWN
     Route: 048
  7. PRILOSEC [Concomitant]
     Indication: GASTROOESOPHAGEAL REFLUX DISEASE
     Route: 048
  8. ASPIRIN [Concomitant]
     Indication: ANTICOAGULANT THERAPY
     Route: 048
  9. TOPROL-XL [Concomitant]
     Indication: ATRIAL FIBRILLATION
     Route: 048
     Dates: start: 20081001
  10. NIACIN [Concomitant]
     Indication: BLOOD CHOLESTEROL INCREASED
     Route: 048
  11. POTASSIUM CHLORIDE [Concomitant]
     Indication: BLOOD POTASSIUM DECREASED
     Route: 048
  12. FOLIC ACID [Concomitant]
     Indication: MEDICAL DIET
     Route: 048
  13. CHOLEST CARE (RED YEAST RICE) [Concomitant]
     Indication: BLOOD CHOLESTEROL INCREASED
     Route: 048
  14. NOVALOG INSULIN [Concomitant]
     Indication: DIABETES MELLITUS
     Dosage: SLIDING SCALE
     Route: 058
  15. LEVEMIR [Concomitant]
     Indication: DIABETES MELLITUS
     Dosage: 30-35 UNITS DEPENDING WHICH DIALYSIS SOLUTION USED
     Route: 058

REACTIONS (4)
  - ABDOMINAL PAIN UPPER [None]
  - CARDIAC FAILURE [None]
  - MENTAL STATUS CHANGES [None]
  - PERITONITIS [None]
